FAERS Safety Report 9439605 (Version 5)
Quarter: 2014Q2

REPORT INFORMATION
  Report Type: Report from Study
  Country: US (occurrence: US)
  Receive Date: 20130805
  Receipt Date: 20140410
  Transmission Date: 20141212
  Serious: Yes (Other)
  Sender: FDA-Public Use
  Company Number: US-MERCK-1307USA016207

PATIENT
  Age: 56 Year
  Sex: Male
  Weight: 72.8 kg

DRUGS (11)
  1. BOCEPREVIR [Suspect]
     Indication: HEPATITIS C
     Dosage: 800 MG, Q8H
     Route: 048
     Dates: start: 20130502, end: 20140313
  2. BOCEPREVIR [Suspect]
     Indication: HIV INFECTION
  3. PEGINTRON [Suspect]
     Indication: HEPATITIS C
     Dosage: 120.00 MICROGRAM, QW
     Route: 058
     Dates: start: 20130404, end: 20130726
  4. PEGINTRON [Suspect]
     Indication: HIV INFECTION
     Dosage: 80 MICROGRAM,QW
     Route: 058
     Dates: start: 20130808, end: 20130821
  5. PEGINTRON [Suspect]
     Dosage: 120 MICROGRAM, QW
     Route: 058
     Dates: start: 20130829, end: 20140312
  6. REBETOL [Suspect]
     Indication: HEPATITIS C
     Dosage: 1400 MILLIGRAMS EVERY DAY
     Route: 048
     Dates: start: 20130404, end: 20130726
  7. REBETOL [Suspect]
     Indication: HIV INFECTION
     Dosage: 400 MG, BID
     Route: 048
     Dates: start: 20130726, end: 20140313
  8. LEVOTHYROXINE SODIUM [Concomitant]
  9. BENADRYL [Concomitant]
  10. IBUPROFEN [Concomitant]
  11. EFAVIRENZ (+) EMTRICITABINE (+) TENOFOVIR DISOPROXIL FUMARATE [Concomitant]

REACTIONS (1)
  - Overdose [Recovered/Resolved]
